FAERS Safety Report 25031078 (Version 2)
Quarter: 2025Q2

REPORT INFORMATION
  Report Type: Report from Study
  Country: BR (occurrence: BR)
  Receive Date: 20250303
  Receipt Date: 20250403
  Transmission Date: 20250716
  Serious: Yes (Other)
  Sender: AKCEA THERAPEUTICS
  Company Number: BR-AKCEA THERAPEUTICS, INC.-2025IS000560

PATIENT

DRUGS (2)
  1. TEGSEDI [Suspect]
     Active Substance: INOTERSEN SODIUM
     Indication: Hereditary neuropathic amyloidosis
     Dosage: 284 MILLIGRAM, QW
     Route: 058
     Dates: start: 20151111
  2. RETINOL [Concomitant]
     Active Substance: RETINOL
     Indication: Product used for unknown indication
     Route: 065

REACTIONS (5)
  - Osteomyelitis [Recovered/Resolved]
  - Wound [Not Recovered/Not Resolved]
  - Skin exfoliation [Recovering/Resolving]
  - Depressed mood [Not Recovered/Not Resolved]
  - Feeling of despair [Not Recovered/Not Resolved]
